FAERS Safety Report 22053117 (Version 1)
Quarter: 2023Q1

REPORT INFORMATION
  Report Type: Spontaneous
  Country: PT (occurrence: None)
  Receive Date: 20230302
  Receipt Date: 20230302
  Transmission Date: 20230417
  Serious: Yes (Other)
  Sender: FDA-Public Use
  Company Number: PT-ROCHE-3295047

PATIENT
  Sex: Female

DRUGS (4)
  1. CAPECITABINE [Suspect]
     Active Substance: CAPECITABINE
     Indication: Breast cancer
     Route: 048
  2. HERCEPTIN [Suspect]
     Active Substance: TRASTUZUMAB
     Indication: Breast cancer
     Route: 065
  3. LAPATINIB [Suspect]
     Active Substance: LAPATINIB
     Indication: Breast cancer
     Route: 065
  4. LETROZOLE [Suspect]
     Active Substance: LETROZOLE
     Indication: Breast cancer
     Route: 065

REACTIONS (2)
  - Cardiotoxicity [Unknown]
  - Disease progression [Unknown]
